FAERS Safety Report 9247681 (Version 1)
Quarter: 2013Q2

REPORT INFORMATION
  Report Type: Spontaneous
  Country: IN (occurrence: IN)
  Receive Date: 20130423
  Receipt Date: 20130423
  Transmission Date: 20140414
  Serious: Yes (Other)
  Sender: FDA-Public Use
  Company Number: IN-PFIZER INC-2013121307

PATIENT
  Age: 35 Year
  Sex: Male

DRUGS (4)
  1. PREGABALIN [Suspect]
     Dosage: 2 DF, 1X/DAY
  2. PREGABALIN [Suspect]
     Dosage: 10 DF, 1X/DAY
  3. DICLOFENAC [Suspect]
     Dosage: 2 DF, 1X/DAY
  4. DICLOFENAC [Suspect]
     Dosage: 10 DF, 1X/DAY

REACTIONS (4)
  - Drug abuse [Unknown]
  - Drug dependence [Unknown]
  - Intestinal ulcer [Unknown]
  - Perforated ulcer [Unknown]
